FAERS Safety Report 4797361-0 (Version None)
Quarter: 2005Q4

REPORT INFORMATION
  Report Type: 
  Country: None (occurrence: None)
  Receive Date: 20051013
  Receipt Date: 20051007
  Transmission Date: 20060501
  Serious: Yes (Hospitalization)
  Sender: FDA-Public Use
  Company Number: US-JNJFOC-20051002434

PATIENT
  Sex: Male

DRUGS (7)
  1. DURAGESIC-100 [Suspect]
     Route: 062
  2. PREDNISONE [Concomitant]
     Indication: RHEUMATOID ARTHRITIS
     Route: 048
  3. NEURONTIN [Concomitant]
     Indication: PAIN
     Route: 048
  4. PRILOSEC [Concomitant]
     Route: 048
  5. ZOCOR [Concomitant]
     Route: 048
  6. ATENOLOL [Concomitant]
     Indication: HYPERTENSION
     Route: 048
  7. ZETIA [Concomitant]
     Route: 048

REACTIONS (2)
  - PULMONARY EMBOLISM [None]
  - VENOUS THROMBOSIS LIMB [None]
